FAERS Safety Report 4855496-8 (Version None)
Quarter: 2005Q4

REPORT INFORMATION
  Report Type: 
  Country: None (occurrence: None)
  Receive Date: 20051214
  Receipt Date: 20051104
  Transmission Date: 20060501
  Serious: Yes (Hospitalization, Other)
  Sender: FDA-Public Use
  Company Number: 2005147222

PATIENT
  Age: 42 Year
  Sex: Male

DRUGS (3)
  1. NARDIL [Suspect]
     Indication: ANXIETY
     Dates: start: 20030101
  2. NARDIL [Suspect]
     Indication: DEPRESSION
     Dates: start: 20030101
  3. XANAX [Concomitant]

REACTIONS (9)
  - ANXIETY [None]
  - CONDITION AGGRAVATED [None]
  - DEPRESSION [None]
  - DRUG DEPENDENCE [None]
  - DRUG EFFECT DECREASED [None]
  - FOOD CRAVING [None]
  - MANIA [None]
  - PANIC ATTACK [None]
  - WEIGHT INCREASED [None]
